FAERS Safety Report 24803890 (Version 1)
Quarter: 2025Q1

REPORT INFORMATION
  Report Type: Spontaneous
  Country: US (occurrence: US)
  Receive Date: 20250103
  Receipt Date: 20250103
  Transmission Date: 20250409
  Serious: No
  Sender: ABBVIE
  Company Number: US-ABBVIE-6069921

PATIENT
  Sex: Female

DRUGS (1)
  1. RINVOQ [Suspect]
     Active Substance: UPADACITINIB
     Indication: Dermatitis atopic
     Dosage: FORM STRENGTH-15 MG
     Route: 048
     Dates: start: 202411, end: 202412

REACTIONS (1)
  - Ulcer haemorrhage [Unknown]

NARRATIVE: CASE EVENT DATE: 20241201
